FAERS Safety Report 7329717-6 (Version None)
Quarter: 2011Q1

REPORT INFORMATION
  Report Type: 
  Country: None (occurrence: None)
  Receive Date: 20110303
  Receipt Date: 20110218
  Transmission Date: 20110831
  Serious: Yes (Hospitalization)
  Sender: FDA-Public Use
  Company Number: PHHY2010JP61585

PATIENT
  Age: 49 Year
  Sex: Female

DRUGS (4)
  1. NEORAL [Suspect]
     Dosage: 200 MG,
     Route: 048
     Dates: start: 20080518, end: 20080520
  2. TACROLIMUS [Suspect]
  3. PLASMAPHERESIS BLOOD-PACK SYSTEM INFUSION [Concomitant]
  4. RITUXIMAB [Concomitant]

REACTIONS (6)
  - ASPARTATE AMINOTRANSFERASE INCREASED [None]
  - ANTIBODY TEST ABNORMAL [None]
  - BLOOD ALKALINE PHOSPHATASE INCREASED [None]
  - ALANINE AMINOTRANSFERASE INCREASED [None]
  - LYMPHOCYTE STIMULATION TEST POSITIVE [None]
  - LIVER DISORDER [None]
